FAERS Safety Report 6429679-X (Version None)
Quarter: 2009Q4

REPORT INFORMATION
  Report Type: 
  Country: None (occurrence: None)
  Receive Date: 20091106
  Receipt Date: 20091026
  Transmission Date: 20100525
  Serious: Yes (Hospitalization)
  Sender: FDA-Public Use
  Company Number: US-BAXTER-2009BH016581

PATIENT
  Age: 52 Year
  Sex: Female

DRUGS (1)
  1. ARALAST NP [Suspect]
     Indication: DRUG USE FOR UNKNOWN INDICATION
     Route: 042
     Dates: start: 20091023, end: 20091023

REACTIONS (4)
  - CHILLS [None]
  - DEVICE RELATED INFECTION [None]
  - DIZZINESS [None]
  - RASH [None]
